FAERS Safety Report 22767735 (Version 3)
Quarter: 2024Q1

REPORT INFORMATION
  Report Type: Spontaneous
  Country: GB (occurrence: GB)
  Receive Date: 20230731
  Receipt Date: 20240226
  Transmission Date: 20240410
  Serious: Yes (Hospitalization, Other)
  Sender: FDA-Public Use
  Company Number: GB-MYLANLABS-2023M1078883

PATIENT
  Age: 64 Year
  Sex: Female

DRUGS (2)
  1. CLOZARIL [Suspect]
     Active Substance: CLOZAPINE
     Indication: Schizophrenia
     Dosage: UNK
     Route: 048
     Dates: start: 202302
  2. CLOZARIL [Suspect]
     Active Substance: CLOZAPINE
     Dosage: UNK
     Route: 048
     Dates: start: 20230307, end: 20240213

REACTIONS (9)
  - Schizophrenia [Unknown]
  - Product use issue [Unknown]
  - Hospitalisation [Recovered/Resolved]
  - Dementia Alzheimer^s type [Unknown]
  - Epilepsy [Unknown]
  - Alcoholism [Unknown]
  - Anxiety disorder [Unknown]
  - Agitation [Unknown]
  - Treatment noncompliance [Unknown]

NARRATIVE: CASE EVENT DATE: 20230307
